FAERS Safety Report 12095246 (Version 1)
Quarter: 2016Q1

REPORT INFORMATION
  Report Type: Report from Study
  Country: US (occurrence: US)
  Receive Date: 20160219
  Receipt Date: 20160219
  Transmission Date: 20160526
  Serious: Yes (Other)
  Sender: FDA-Public Use
  Company Number: US-ABBVIE-16P-163-1556402-00

PATIENT
  Sex: Female

DRUGS (1)
  1. LUPRON DEPOT [Suspect]
     Active Substance: LEUPROLIDE ACETATE
     Indication: ENDOMETRIOSIS
     Route: 050
     Dates: start: 2014

REACTIONS (4)
  - Hydronephrosis [Unknown]
  - Bladder spasm [Recovered/Resolved]
  - Ureteric obstruction [Unknown]
  - Pelvic pain [Unknown]

NARRATIVE: CASE EVENT DATE: 2015
